FAERS Safety Report 26092771 (Version 1)
Quarter: 2025Q4

REPORT INFORMATION
  Report Type: Spontaneous
  Country: US (occurrence: None)
  Receive Date: 20251126
  Receipt Date: 20251126
  Transmission Date: 20260118
  Serious: No
  Sender: FDA-CTU
  Company Number: None

PATIENT

DRUGS (1)
  1. VYVANSE [Suspect]
     Active Substance: LISDEXAMFETAMINE DIMESYLATE

REACTIONS (4)
  - Therapeutic product effect decreased [None]
  - Irritability [None]
  - Appetite disorder [None]
  - Discomfort [None]

NARRATIVE: CASE EVENT DATE: 20251125
